FAERS Safety Report 12405725 (Version 4)
Quarter: 2016Q4

REPORT INFORMATION
  Report Type: Spontaneous
  Country: US (occurrence: US)
  Receive Date: 20160526
  Receipt Date: 20161103
  Transmission Date: 20170207
  Serious: No
  Sender: FDA-Public Use
  Company Number: US-GLAXOSMITHKLINE-US2016067335

PATIENT
  Age: 75 Year
  Sex: Female

DRUGS (1)
  1. VOLTAREN [Suspect]
     Active Substance: DICLOFENAC SODIUM
     Indication: SCIATICA
     Dosage: UNK
     Dates: start: 2012, end: 201605

REACTIONS (5)
  - Product quality issue [Unknown]
  - Expired product administered [Unknown]
  - Drug administered at inappropriate site [Unknown]
  - Drug administration error [Unknown]
  - Product use issue [Unknown]
